FAERS Safety Report 8181616-6 (Version None)
Quarter: 2012Q1

REPORT INFORMATION
  Report Type: 
  Country: None (occurrence: None)
  Receive Date: 20120302
  Receipt Date: 20120302
  Transmission Date: 20120608
  Serious: Yes (Hospitalization)
  Sender: FDA-Public Use
  Company Number: BE-ABBOTT-12P-013-0910353-00

PATIENT
  Sex: Female

DRUGS (2)
  1. HUMIRA [Suspect]
     Indication: ANKYLOSING SPONDYLITIS
  2. MEDROL [Concomitant]
     Indication: ARTHRITIS
     Dosage: 8MG-16MG PER DAY, ALTERNATELY
     Dates: start: 20111205

REACTIONS (1)
  - HOSPITALISATION [None]
